FAERS Safety Report 6748457-5 (Version None)
Quarter: 2010Q2

REPORT INFORMATION
  Report Type: 
  Country: None (occurrence: None)
  Receive Date: 20100527
  Receipt Date: 20100527
  Transmission Date: 20101027
  Serious: Yes (Other)
  Sender: FDA-Public Use
  Company Number: None

PATIENT
  Sex: Female
  Weight: 62.1428 kg

DRUGS (10)
  1. PEGASYS [Suspect]
     Indication: HEPATITIS C
     Dosage: 180MCG EVERY WEEK SQ
     Route: 058
     Dates: start: 20100509, end: 20100526
  2. RIBAVIRIN [Concomitant]
  3. FENTANYL [Concomitant]
  4. LISINOPRIL [Concomitant]
  5. MILK THISTLE [Concomitant]
  6. MAGNESIUM [Concomitant]
  7. CALCIUM W/VITAMIN D [Concomitant]
  8. SOMA [Concomitant]
  9. DILAUDID [Concomitant]
  10. ZINC [Concomitant]

REACTIONS (2)
  - INCORRECT DOSE ADMINISTERED [None]
  - MEDICATION ERROR [None]
